FAERS Safety Report 8058082-4 (Version None)
Quarter: 2012Q1

REPORT INFORMATION
  Report Type: 
  Country: None (occurrence: None)
  Receive Date: 20120118
  Receipt Date: 20120118
  Transmission Date: 20120608
  Serious: Yes (Hospitalization, Other)
  Sender: FDA-Public Use
  Company Number: None

PATIENT
  Age: 52 Year
  Sex: Male
  Weight: 87.3 kg

DRUGS (12)
  1. HEPARIN [Concomitant]
  2. NITROGLYCERIN [Concomitant]
  3. ASPIRIN [Concomitant]
  4. METOPROLOL [Concomitant]
  5. BIVALIRUDIN [Concomitant]
  6. MIDAZOLAM [Concomitant]
  7. POTASSIUM CHLORIDE [Concomitant]
  8. EPTIFIBATIDE [Suspect]
     Indication: PERCUTANEOUS CORONARY INTERVENTION
     Dosage: 15.8 MG BOLUS X2 IV
     Route: 040
     Dates: start: 20120109
  9. FENTANYL [Concomitant]
  10. EPTIFIBATIDE [Suspect]
  11. MORPHINE [Concomitant]
  12. CLOPIDOGREL [Concomitant]

REACTIONS (2)
  - CORONARY ARTERY OCCLUSION [None]
  - PLATELET COUNT DECREASED [None]
